FAERS Safety Report 4511066-2 (Version None)
Quarter: 2004Q4

REPORT INFORMATION
  Report Type: 
  Country: None (occurrence: None)
  Receive Date: 20041015
  Receipt Date: 20040409
  Transmission Date: 20050328
  Serious: Yes (Hospitalization, Other)
  Sender: FDA-Public Use
  Company Number: 2004013500

PATIENT
  Age: 36 Year
  Sex: Female

DRUGS (5)
  1. NEURONTIN [Suspect]
     Indication: NEURITIS
     Dosage: TID
     Dates: start: 20021125, end: 20031104
  2. CLONAZEPAM [Suspect]
     Indication: BACK PAIN
     Dosage: ORAL
     Route: 048
     Dates: start: 20030213, end: 20030722
  3. VICODIN [Concomitant]
  4. OXYCODONE HYDROCHLORIDE AND ACETAMINOPHEN [Concomitant]
  5. OXYCODONE HYDROCHLORIDE (OXYCODONE HYDROCHLORIDE) [Concomitant]

REACTIONS (4)
  - BACK PAIN [None]
  - INTENTIONAL OVERDOSE [None]
  - MEDICATION ERROR [None]
  - SUICIDE ATTEMPT [None]
